FAERS Safety Report 17942960 (Version 1)
Quarter: 2020Q2

REPORT INFORMATION
  Report Type: Spontaneous
  Country: US (occurrence: US)
  Receive Date: 20200625
  Receipt Date: 20200625
  Transmission Date: 20200714
  Serious: Yes (Other)
  Sender: FDA-Public Use
  Company Number: None

PATIENT
  Age: 64 Year
  Sex: Female

DRUGS (1)
  1. RYBELSUS [Suspect]
     Active Substance: SEMAGLUTIDE
     Indication: DIABETES MELLITUS
     Dosage: ?          QUANTITY:1 TABLET(S);?
     Route: 048

REACTIONS (10)
  - Abdominal pain [None]
  - Atrial fibrillation [None]
  - Pulse abnormal [None]
  - Hypophagia [None]
  - Dehydration [None]
  - Blood pressure immeasurable [None]
  - Vomiting [None]
  - Oesophageal pain [None]
  - Dysphagia [None]
  - Asthenia [None]

NARRATIVE: CASE EVENT DATE: 20200620
